FAERS Safety Report 4675029-9 (Version None)
Quarter: 2005Q2

REPORT INFORMATION
  Report Type: 
  Country: None (occurrence: None)
  Receive Date: 20050525
  Receipt Date: 20050512
  Transmission Date: 20051028
  Serious: Yes (Other)
  Sender: FDA-Public Use
  Company Number: US-2005-007019

PATIENT
  Age: 50 Year
  Sex: Male
  Weight: 82.5 kg

DRUGS (11)
  1. CAMPATH [Suspect]
     Indication: CHRONIC LYMPHOCYTIC LEUKAEMIA
     Dosage: 3 MG, 1 DOSE, SUBCUTANEOUS
     Route: 058
     Dates: start: 20050124, end: 20050124
  2. BENADRYL ^WARNER-LAMBERT^  /USA (DEPHENYDRAMINE HYDROCHLORIDE) [Concomitant]
  3. DECADRON             /CAN/ [Concomitant]
  4. CLARITIN [Concomitant]
  5. BACTRIM DS [Concomitant]
  6. ACYCLOVIR [Concomitant]
  7. FLUCONAZOLE [Concomitant]
  8. DILTIA XT(DILTIZEM HYDROCHLORIDE) [Concomitant]
  9. LISINOPRIL W/HYDROCHLOROTHIAZIDE (LISINOPRIL) [Concomitant]
  10. LIPITOR [Concomitant]
  11. SELENIUM (SELENIUM) [Concomitant]

REACTIONS (3)
  - CYTOMEGALOVIRUS CHORIORETINITIS [None]
  - RASH [None]
  - RETINAL INFARCTION [None]
